FAERS Safety Report 13245293 (Version 2)
Quarter: 2017Q1

REPORT INFORMATION
  Report Type: Report from Study
  Country: BR (occurrence: BR)
  Receive Date: 20170217
  Receipt Date: 20170302
  Transmission Date: 20170428
  Serious: Yes (Hospitalization)
  Sender: FDA-Public Use
  Company Number: BR-ROCHE-1872430

PATIENT
  Sex: Female

DRUGS (3)
  1. XOLAIR [Suspect]
     Active Substance: OMALIZUMAB
     Route: 058
     Dates: start: 201609
  2. XOLAIR [Suspect]
     Active Substance: OMALIZUMAB
     Indication: LUNG DISORDER
     Route: 058
  3. XOLAIR [Suspect]
     Active Substance: OMALIZUMAB
     Indication: ASTHMA
     Route: 058
     Dates: start: 20160809

REACTIONS (13)
  - Asthma [Unknown]
  - Respiratory disorder [Unknown]
  - Allergic bronchitis [Unknown]
  - Asthmatic crisis [Recovering/Resolving]
  - Lung disorder [Unknown]
  - Weight increased [Unknown]
  - Visual acuity reduced [Recovering/Resolving]
  - Fatigue [Unknown]
  - Speech disorder [Unknown]
  - Dyspnoea [Unknown]
  - Drug ineffective [Unknown]
  - Cough [Unknown]
  - Product use issue [Unknown]
